FAERS Safety Report 8071605-4 (Version None)
Quarter: 2012Q1

REPORT INFORMATION
  Report Type: 
  Country: None (occurrence: None)
  Receive Date: 20120125
  Receipt Date: 20120119
  Transmission Date: 20120608
  Serious: Yes (Hospitalization, Disabling, Other)
  Sender: FDA-Public Use
  Company Number: PH-PFIZER INC-2009305899

PATIENT
  Age: 76 Year
  Sex: Male
  Weight: 71 kg

DRUGS (5)
  1. CELECOXIB [Suspect]
     Indication: OSTEOARTHRITIS
     Dosage: 100 MG, 2X/DAY
     Route: 048
     Dates: start: 20091111, end: 20091201
  2. CELECOXIB [Suspect]
     Indication: RHEUMATOID ARTHRITIS
  3. LOSARTAN POTASSIUM [Concomitant]
     Dosage: 100 MG, UNK
     Route: 048
     Dates: start: 20090331
  4. NEXIUM [Concomitant]
     Indication: PROPHYLAXIS
     Dosage: 20 MG, 1X/DAY
     Route: 048
     Dates: start: 20091111, end: 20091201
  5. GLUCOSAMINE [Concomitant]
     Dosage: UNK
     Route: 048
     Dates: start: 20070913

REACTIONS (1)
  - PERIPHERAL ISCHAEMIA [None]
